FAERS Safety Report 5206980-9 (Version None)
Quarter: 2007Q1

REPORT INFORMATION
  Report Type: 
  Country: None (occurrence: None)
  Receive Date: 20070110
  Receipt Date: 20061226
  Transmission Date: 20070707
  Serious: Yes (Other)
  Sender: FDA-Public Use
  Company Number: 06-001511

PATIENT
  Age: 32 Year
  Sex: Male

DRUGS (1)
  1. PYRIDIUM (PHENAZOPYRIDINE HYDROCHLORIDE) TABLET, 100MG [Suspect]
     Indication: DYSURIA
     Dosage: SEE IMAGE, ORAL

REACTIONS (8)
  - DIARRHOEA [None]
  - INTENTIONAL OVERDOSE [None]
  - METHAEMOGLOBINAEMIA [None]
  - OCULAR ICTERUS [None]
  - PERITONEAL DIALYSIS [None]
  - RENAL FAILURE ACUTE [None]
  - RENAL TUBULAR NECROSIS [None]
  - YELLOW SKIN [None]
